FAERS Safety Report 12262112 (Version 1)
Quarter: 2016Q2

REPORT INFORMATION
  Report Type: Spontaneous
  Country: US (occurrence: None)
  Receive Date: 20160412
  Receipt Date: 20160412
  Transmission Date: 20160815
  Serious: Yes (Life-Threatening, Disabling)
  Sender: FDA-Public Use
  Company Number: None

PATIENT
  Age: 70 Year
  Sex: Male
  Weight: 70.76 kg

DRUGS (3)
  1. ATORVASTATIN [Concomitant]
     Active Substance: ATORVASTATIN
  2. CENTRUM SILVER [Concomitant]
     Active Substance: MINERALS\VITAMINS
  3. AFRIN [Suspect]
     Active Substance: OXYMETAZOLINE
     Indication: NASOPHARYNGITIS
     Dosage: 2 PUFF(S) ONCE A BEDTIME SPRAYED INTO NOSTRILS
     Route: 045
     Dates: start: 20150510, end: 20150510

REACTIONS (5)
  - Burning sensation [None]
  - Quality of life decreased [None]
  - Application site pain [None]
  - Ageusia [None]
  - Anosmia [None]

NARRATIVE: CASE EVENT DATE: 20150510
